FAERS Safety Report 15852685 (Version 1)
Quarter: 2019Q1

REPORT INFORMATION
  Report Type: Spontaneous
  Country: US (occurrence: US)
  Receive Date: 20190122
  Receipt Date: 20190122
  Transmission Date: 20190417
  Serious: Yes (Other)
  Sender: FDA-Public Use
  Company Number: PHEH2019US002620

PATIENT
  Age: 5 Year
  Sex: Male

DRUGS (2)
  1. DABRAFENIB [Suspect]
     Active Substance: DABRAFENIB
     Indication: BRAF V600E MUTATION POSITIVE
     Dosage: 50 MG, BID
     Route: 065
     Dates: start: 20181219
  2. AFINITOR [Suspect]
     Active Substance: EVEROLIMUS
     Indication: PRODUCT USED FOR UNKNOWN INDICATION
     Dosage: UNK
     Route: 065
     Dates: start: 20180524, end: 201810

REACTIONS (4)
  - Dysphagia [Unknown]
  - BRAF V600E mutation positive [Unknown]
  - Astrocytoma, low grade [Unknown]
  - Disease progression [Unknown]

NARRATIVE: CASE EVENT DATE: 20181015
